FAERS Safety Report 8026103-0 (Version None)
Quarter: 2012Q1

REPORT INFORMATION
  Report Type: 
  Country: None (occurrence: None)
  Receive Date: 20120105
  Receipt Date: 20111230
  Transmission Date: 20120608
  Serious: Yes (Other)
  Sender: FDA-Public Use
  Company Number: US-ASTRAZENECA-2012SE00354

PATIENT
  Age: 77 Year
  Sex: Female

DRUGS (1)
  1. NEXIUM [Suspect]
     Route: 048

REACTIONS (4)
  - ASPIRATION [None]
  - CEREBROVASCULAR ACCIDENT [None]
  - DRUG DOSE OMISSION [None]
  - PNEUMONIA [None]
